FAERS Safety Report 15763861 (Version 1)
Quarter: 2018Q4

REPORT INFORMATION
  Report Type: Spontaneous
  Country: ES (occurrence: ES)
  Receive Date: 20181227
  Receipt Date: 20181227
  Transmission Date: 20190205
  Serious: Yes (Life-Threatening, Hospitalization)
  Sender: FDA-Public Use
  Company Number: ES-TEVA-2018-ES-991270

PATIENT
  Age: 36 Year
  Sex: Male

DRUGS (2)
  1. PREDNISONA CINFA 30 MG COMPRIMIDOS EFG, 30 COMPRIMIDOS [Suspect]
     Active Substance: PREDNISONE
     Indication: ANGIOEDEMA
     Dosage: 30 MILLIGRAM DAILY;
     Route: 048
     Dates: start: 20180916, end: 20180920
  2. CETIRIZINA (2364A) [Suspect]
     Active Substance: CETIRIZINE HYDROCHLORIDE
     Indication: ANGIOEDEMA
     Dosage: 10 MILLIGRAM DAILY;
     Route: 048
     Dates: start: 20180916, end: 20180920

REACTIONS (1)
  - Mesenteric vein thrombosis [Recovered/Resolved]

NARRATIVE: CASE EVENT DATE: 20180920
